FAERS Safety Report 6744240-5 (Version None)
Quarter: 2010Q2

REPORT INFORMATION
  Report Type: 
  Country: None (occurrence: None)
  Receive Date: 20100527
  Receipt Date: 20100517
  Transmission Date: 20101027
  Serious: Yes (Death, Life-Threatening)
  Sender: FDA-Public Use
  Company Number: BR-JNJFOC-20100507755

PATIENT
  Age: 62 Year
  Sex: Male

DRUGS (6)
  1. REMICADE [Suspect]
     Indication: PSORIATIC ARTHROPATHY
     Route: 042
  2. REMICADE [Suspect]
     Route: 042
  3. METHOTREXATE [Concomitant]
  4. FOLIC ACID [Concomitant]
  5. METFORMIN HYDROCHLORIDE [Concomitant]
  6. GLIBENCLAMIDE [Concomitant]

REACTIONS (3)
  - DEATH [None]
  - GUILLAIN-BARRE SYNDROME [None]
  - PSORIASIS [None]
